FAERS Safety Report 17983689 (Version 1)
Quarter: 2020Q3

REPORT INFORMATION
  Report Type: Spontaneous
  Country: US (occurrence: US)
  Receive Date: 20200703
  Receipt Date: 20200703
  Transmission Date: 20201103
  Serious: Yes (Hospitalization)
  Sender: FDA-Public Use
  Company Number: None

PATIENT
  Age: 76 Year
  Sex: Male
  Weight: 80.74 kg

DRUGS (1)
  1. LOSARTAN (LOSARTAN 50MG TAB) [Suspect]
     Active Substance: LOSARTAN
     Indication: HYPERTENSION
     Dates: start: 20110921, end: 20200205

REACTIONS (4)
  - Hyperkalaemia [None]
  - Hypertension [None]
  - Bradycardia [None]
  - Ventricular arrhythmia [None]

NARRATIVE: CASE EVENT DATE: 20200131
